FAERS Safety Report 21636704 (Version 1)
Quarter: 2022Q4

REPORT INFORMATION
  Report Type: Spontaneous
  Country: GB (occurrence: GB)
  Receive Date: 20221124
  Receipt Date: 20221124
  Transmission Date: 20230113
  Serious: Yes (Hospitalization)
  Sender: FDA-Public Use
  Company Number: GB-MHRA-MED-202211220849391850-HPGKT

PATIENT
  Age: 16 Year
  Sex: Female
  Weight: 55 kg

DRUGS (2)
  1. RINVOQ [Suspect]
     Active Substance: UPADACITINIB
     Indication: Adverse drug reaction
     Dosage: 15MG DAILY
     Route: 048
     Dates: start: 20220809
  2. HYDROMOL [Concomitant]
     Indication: Eczema
     Dosage: EMOLLIENT
     Dates: start: 20150101

REACTIONS (1)
  - Appendicitis [Recovered/Resolved]

NARRATIVE: CASE EVENT DATE: 20221001
